FAERS Safety Report 10310205 (Version 1)
Quarter: 2014Q3

REPORT INFORMATION
  Report Type: Other
  Country: DE (occurrence: DE)
  Receive Date: 20140717
  Receipt Date: 20140717
  Transmission Date: 20150326
  Serious: Yes (Hospitalization)
  Sender: FDA-Public Use
  Company Number: DE-LUPIN PHARMACEUTICALS INC.-E2B_00001501

PATIENT
  Age: 74 Year
  Sex: Female

DRUGS (13)
  1. JATROSOM N [Suspect]
     Active Substance: TRANYLCYPROMINE SULFATE
     Indication: PRODUCT USED FOR UNKNOWN INDICATION
     Route: 048
     Dates: start: 20130131, end: 20130202
  2. JATROSOM N [Suspect]
     Active Substance: TRANYLCYPROMINE SULFATE
     Route: 048
     Dates: start: 20130203, end: 20130205
  3. RISPERDAL [Concomitant]
     Active Substance: RISPERIDONE
     Indication: PRODUCT USED FOR UNKNOWN INDICATION
     Route: 048
     Dates: start: 20130213, end: 20130301
  4. L-THYROXIN [Concomitant]
     Active Substance: LEVOTHYROXINE SODIUM
     Indication: PRODUCT USED FOR UNKNOWN INDICATION
     Route: 048
  5. LAMOTRIGIN [Suspect]
     Active Substance: LAMOTRIGINE
     Indication: PRODUCT USED FOR UNKNOWN INDICATION
     Dosage: 25-125 MG (INCREASED GENEROUSLY TO 25MG EVERY WEEK)
     Route: 048
     Dates: start: 20130130
  6. JATROSOM N [Suspect]
     Active Substance: TRANYLCYPROMINE SULFATE
     Route: 048
     Dates: start: 20130301, end: 20130302
  7. QUILONUM RETARD [Suspect]
     Active Substance: LITHIUM CARBONATE
     Indication: PRODUCT USED FOR UNKNOWN INDICATION
     Route: 048
  8. TAVOR [Concomitant]
     Active Substance: LORAZEPAM
     Indication: PRODUCT USED FOR UNKNOWN INDICATION
     Route: 048
     Dates: start: 20130130, end: 20130416
  9. JATROSOM N [Suspect]
     Active Substance: TRANYLCYPROMINE SULFATE
     Route: 048
     Dates: start: 20130206, end: 20130212
  10. JATROSOM N [Suspect]
     Active Substance: TRANYLCYPROMINE SULFATE
     Route: 048
     Dates: start: 20130213, end: 20130215
  11. JATROSOM N [Suspect]
     Active Substance: TRANYLCYPROMINE SULFATE
     Route: 048
     Dates: start: 20130216, end: 20130228
  12. PANTOZOL [Concomitant]
     Active Substance: PANTOPRAZOLE SODIUM
     Indication: PRODUCT USED FOR UNKNOWN INDICATION
     Route: 048
  13. FLURAZEPAM [Concomitant]
     Active Substance: FLURAZEPAM\FLURAZEPAM HYDROCHLORIDE
     Indication: PRODUCT USED FOR UNKNOWN INDICATION
     Route: 048
     Dates: start: 20130129, end: 20130301

REACTIONS (1)
  - Delirium [Recovered/Resolved]

NARRATIVE: CASE EVENT DATE: 20130228
